FAERS Safety Report 16675466 (Version 2)
Quarter: 2019Q4

REPORT INFORMATION
  Report Type: Report from Study
  Country: CO (occurrence: CO)
  Receive Date: 20190806
  Receipt Date: 20191003
  Transmission Date: 20200122
  Serious: Yes (Life-Threatening, Hospitalization, Other)
  Sender: FDA-Public Use
  Company Number: PHHY2019CO116734

PATIENT
  Age: 64 Year
  Sex: Female

DRUGS (9)
  1. ESOMEPRAZOLE. [Concomitant]
     Active Substance: ESOMEPRAZOLE MAGNESIUM
     Indication: PRODUCT USED FOR UNKNOWN INDICATION
     Dosage: 20 MG, QD
     Route: 065
     Dates: start: 20190612
  2. REVOLADE [Suspect]
     Active Substance: ELTROMBOPAG
     Dosage: 75 MG, QD (MONDAY TO FRIDAY)
     Route: 048
  3. METOCLOPRAMIDE. [Suspect]
     Active Substance: METOCLOPRAMIDE
     Indication: PRODUCT USED FOR UNKNOWN INDICATION
     Dosage: 10 MG, UNK
     Route: 065
     Dates: end: 20190613
  4. REVOLADE [Suspect]
     Active Substance: ELTROMBOPAG
     Dosage: 100 MG, QD
     Route: 048
     Dates: start: 20190621
  5. DEXAMETHASONE. [Suspect]
     Active Substance: DEXAMETHASONE
     Dosage: 8 MG/ML, UNK
     Route: 065
  6. REVOLADE [Suspect]
     Active Substance: ELTROMBOPAG
     Indication: IMMUNE THROMBOCYTOPENIC PURPURA
     Dosage: 50 MG, QD
     Route: 048
     Dates: start: 20190417
  7. ESOMEPRAZOLE. [Concomitant]
     Active Substance: ESOMEPRAZOLE MAGNESIUM
     Dosage: 40 MG, Q12H
     Route: 048
  8. REVOLADE [Suspect]
     Active Substance: ELTROMBOPAG
     Dosage: 75 MG, QD
     Route: 048
  9. DEXAMETHASONE. [Suspect]
     Active Substance: DEXAMETHASONE
     Indication: BRADYCARDIA
     Dosage: 40 MG, 1 TO 4 DAYS
     Route: 042

REACTIONS (26)
  - Thrombocytopenic purpura [Unknown]
  - Blood pressure systolic increased [Unknown]
  - Blood pressure diastolic decreased [Unknown]
  - Disease recurrence [Unknown]
  - Atrioventricular dissociation [Unknown]
  - Bradyarrhythmia [Unknown]
  - Hypokalaemia [Unknown]
  - Wheezing [Unknown]
  - Gastrointestinal disorder [Unknown]
  - Sinus node dysfunction [Unknown]
  - Platelet count increased [Unknown]
  - Lymphoproliferative disorder [Recovered/Resolved]
  - Bone marrow failure [Unknown]
  - General physical health deterioration [Unknown]
  - Cerebral haemorrhage [Unknown]
  - Drug intolerance [Unknown]
  - Platelet count decreased [Unknown]
  - Atrial tachycardia [Unknown]
  - Therapy non-responder [Unknown]
  - Anaemia [Unknown]
  - Bradycardia [Not Recovered/Not Resolved]
  - Petechiae [Unknown]
  - Inflammation [Unknown]
  - Prescribed overdose [Unknown]
  - Heart rate decreased [Unknown]
  - Nervous system disorder [Unknown]

NARRATIVE: CASE EVENT DATE: 20190525
